FAERS Safety Report 5171342-X (Version None)
Quarter: 2006Q4

REPORT INFORMATION
  Report Type: 
  Country: None (occurrence: None)
  Receive Date: 20061213
  Receipt Date: 20060302
  Transmission Date: 20070319
  Serious: Yes (Hospitalization)
  Sender: FDA-Public Use
  Company Number: US-AMGEN-STX170923

PATIENT
  Sex: Male

DRUGS (8)
  1. ENBREL [Suspect]
     Indication: RHEUMATOID ARTHRITIS
     Dates: start: 20051001, end: 20060301
  2. METHOTREXATE [Concomitant]
  3. ZOCOR [Concomitant]
  4. PREDNISONE TAB [Concomitant]
  5. VICODIN [Concomitant]
  6. MOBIC [Concomitant]
  7. DYAZIDE [Concomitant]
  8. ASPIRIN [Concomitant]

REACTIONS (1)
  - EPIGLOTTITIS [None]
